FAERS Safety Report 5830898-1 (Version None)
Quarter: 2008Q3

REPORT INFORMATION
  Report Type: 
  Country: None (occurrence: None)
  Receive Date: 20080801
  Receipt Date: 20080123
  Transmission Date: 20090109
  Serious: No
  Sender: FDA-Public Use
  Company Number: US-BRISTOL-MYERS SQUIBB COMPANY-14052591

PATIENT
  Sex: Male

DRUGS (2)
  1. COUMADIN [Suspect]
  2. PROVIGIL [Interacting]
     Route: 048

REACTIONS (2)
  - DRUG INTERACTION [None]
  - EPISTAXIS [None]
